FAERS Safety Report 25118283 (Version 2)
Quarter: 2025Q2

REPORT INFORMATION
  Report Type: Spontaneous
  Country: IT (occurrence: IT)
  Receive Date: 20250325
  Receipt Date: 20250519
  Transmission Date: 20250716
  Serious: Yes (Hospitalization, Other)
  Sender: PFIZER
  Company Number: IT-PFIZER INC-202500062599

PATIENT
  Age: 73 Year
  Sex: Female

DRUGS (1)
  1. ELRANATAMAB [Suspect]
     Active Substance: ELRANATAMAB

REACTIONS (5)
  - Cytokine release syndrome [Recovered/Resolved]
  - Neutropenia [Unknown]
  - Hypogammaglobulinaemia [Unknown]
  - Staphylococcal infection [Unknown]
  - Gastritis [Unknown]
